FAERS Safety Report 23343357 (Version 1)
Quarter: 2023Q4

REPORT INFORMATION
  Report Type: Spontaneous
  Country: SE (occurrence: SE)
  Receive Date: 20231227
  Receipt Date: 20231227
  Transmission Date: 20240109
  Serious: Yes (Hospitalization, Other)
  Sender: FDA-Public Use
  Company Number: None

PATIENT
  Age: 57 Year
  Sex: Female

DRUGS (4)
  1. PIQRAY [Suspect]
     Active Substance: ALPELISIB
     Indication: Palliative care
     Dosage: UNK
     Route: 048
     Dates: start: 20230627, end: 20231208
  2. PIQRAY [Suspect]
     Active Substance: ALPELISIB
     Indication: Metastases to central nervous system
  3. PIQRAY [Suspect]
     Active Substance: ALPELISIB
     Indication: Metastases to bone
  4. PIQRAY [Suspect]
     Active Substance: ALPELISIB
     Indication: Breast cancer metastatic

REACTIONS (2)
  - C-reactive protein increased [Recovered/Resolved]
  - Diarrhoea [Recovered/Resolved]

NARRATIVE: CASE EVENT DATE: 20231128
